FAERS Safety Report 9741168 (Version 3)
Quarter: 2014Q1

REPORT INFORMATION
  Report Type: Spontaneous
  Country: US (occurrence: US)
  Receive Date: 20131209
  Receipt Date: 20140121
  Transmission Date: 20141002
  Serious: Yes (Hospitalization)
  Sender: FDA-Public Use
  Company Number: US-TEVA-448523USA

PATIENT
  Age: 45 Year
  Sex: Female

DRUGS (2)
  1. COPAXONE [Suspect]
     Indication: RELAPSING-REMITTING MULTIPLE SCLEROSIS
     Dates: start: 2007, end: 20131201
  2. TRAZODONE [Suspect]
     Indication: ANXIETY
     Dosage: 2 X 25 MG AT BEDTIME

REACTIONS (10)
  - Respiratory arrest [Recovered/Resolved]
  - Syncope [Recovered/Resolved]
  - Respiratory rate decreased [Recovered/Resolved]
  - Shock [Recovered/Resolved]
  - Pneumonia [Recovered/Resolved]
  - Urinary tract infection [Recovered/Resolved]
  - Hypoventilation [Recovered/Resolved]
  - Confusional state [Unknown]
  - Irritability [Unknown]
  - Presyncope [Unknown]
